FAERS Safety Report 21288060 (Version 1)
Quarter: 2022Q3

REPORT INFORMATION
  Report Type: Spontaneous
  Country: US (occurrence: US)
  Receive Date: 20220902
  Receipt Date: 20220902
  Transmission Date: 20221027
  Serious: No
  Sender: FDA-Public Use
  Company Number: US-ABBVIE-22K-163-4485948-00

PATIENT

DRUGS (1)
  1. ORILISSA [Suspect]
     Active Substance: ELAGOLIX SODIUM
     Indication: Product used for unknown indication
     Route: 048

REACTIONS (10)
  - Paranoia [Unknown]
  - Intrusive thoughts [Unknown]
  - Irritability [Unknown]
  - Alopecia [Unknown]
  - Dry skin [Unknown]
  - Insomnia [Unknown]
  - Weight increased [Unknown]
  - Depression [Unknown]
  - Anxiety [Unknown]
  - Pruritus [Unknown]
